FAERS Safety Report 25240094 (Version 2)
Quarter: 2025Q3

REPORT INFORMATION
  Report Type: Spontaneous
  Country: US (occurrence: US)
  Receive Date: 20250425
  Receipt Date: 20250729
  Transmission Date: 20251021
  Serious: No
  Sender: GILEAD
  Company Number: US-GILEAD-2025-0711615

PATIENT
  Age: 46 Year
  Sex: Male

DRUGS (2)
  1. TRUVADA [Suspect]
     Active Substance: EMTRICITABINE\TENOFOVIR DISOPROXIL FUMARATE
     Indication: Prophylaxis against HIV infection
     Route: 048
     Dates: start: 20170424, end: 20180719
  2. TRUVADA [Suspect]
     Active Substance: EMTRICITABINE\TENOFOVIR DISOPROXIL FUMARATE
     Route: 048
     Dates: start: 20170424, end: 20190604

REACTIONS (4)
  - Tooth loss [Unknown]
  - Bone density decreased [Unknown]
  - Vitamin D deficiency [Unknown]
  - Osteopenia [Not Recovered/Not Resolved]

NARRATIVE: CASE EVENT DATE: 20180531
